FAERS Safety Report 13972660 (Version 2)
Quarter: 2018Q1

REPORT INFORMATION
  Report Type: Spontaneous
  Country: CA (occurrence: CA)
  Receive Date: 20170914
  Receipt Date: 20180130
  Transmission Date: 20180508
  Serious: Yes (Hospitalization, Other)
  Sender: FDA-Public Use
  Company Number: CA-SA-2017SA166442

PATIENT
  Age: 52 Year
  Sex: Female

DRUGS (14)
  1. ARAVA [Suspect]
     Active Substance: LEFLUNOMIDE
     Route: 048
  2. NAPROXEN. [Concomitant]
     Active Substance: NAPROXEN
     Route: 065
  3. CEFAZOLIN [Suspect]
     Active Substance: CEFAZOLIN
     Route: 065
  4. CIMZIA [Suspect]
     Active Substance: CERTOLIZUMAB PEGOL
     Dosage: FORM: SOLUTION SUBCUTANEOUS
     Route: 058
  5. LEFLUNOMIDE. [Suspect]
     Active Substance: LEFLUNOMIDE
     Route: 048
     Dates: start: 200505, end: 200506
  6. HUMIRA [Suspect]
     Active Substance: ADALIMUMAB
     Dosage: FORM:SOLUTION SUBCUTANEOUS
     Route: 058
  7. REMICADE [Suspect]
     Active Substance: INFLIXIMAB
     Dosage: FORM:POWDER FOR SOLUTION INTRAVENOUS
     Route: 065
  8. ORENCIA [Suspect]
     Active Substance: ABATACEPT
     Route: 065
  9. PLAQUENIL [Suspect]
     Active Substance: HYDROXYCHLOROQUINE SULFATE
     Route: 048
     Dates: start: 200405, end: 200406
  10. METHOTREXATE SODIUM. [Suspect]
     Active Substance: METHOTREXATE SODIUM
     Indication: RHEUMATOID ARTHRITIS
     Route: 058
     Dates: start: 200505, end: 200506
  11. XELJANZ [Suspect]
     Active Substance: TOFACITINIB CITRATE
     Indication: RHEUMATOID ARTHRITIS
     Route: 048
     Dates: start: 20160601
  12. ENBREL [Suspect]
     Active Substance: ETANERCEPT
     Indication: RHEUMATOID ARTHRITIS
     Route: 065
  13. RITUXAN [Suspect]
     Active Substance: RITUXIMAB
     Dosage: FORM:SOLUTION INTRAVENOUS
     Route: 065
  14. VIREAD [Concomitant]
     Active Substance: TENOFOVIR DISOPROXIL FUMARATE
     Route: 065

REACTIONS (11)
  - Drug ineffective [Unknown]
  - Hospitalisation [Unknown]
  - Rheumatoid arthritis [Unknown]
  - Adverse event [Unknown]
  - Drug hypersensitivity [Unknown]
  - Arthrodesis [Unknown]
  - Rash [Unknown]
  - Limb operation [Unknown]
  - Shoulder arthroplasty [Unknown]
  - Abdominal discomfort [Unknown]
  - Infection [Unknown]

NARRATIVE: CASE EVENT DATE: 2004
